FAERS Safety Report 22610015 (Version 2)
Quarter: 2023Q2

REPORT INFORMATION
  Report Type: Spontaneous
  Country: AR (occurrence: AR)
  Receive Date: 20230616
  Receipt Date: 20230628
  Transmission Date: 20230722
  Serious: Yes (Other)
  Sender: FDA-Public Use
  Company Number: AR-009507513-2306ARG007113

PATIENT
  Age: 42 Year
  Sex: Female

DRUGS (3)
  1. PEMBROLIZUMAB [Suspect]
     Active Substance: PEMBROLIZUMAB
     Indication: Cervix carcinoma
     Dosage: 200 MG EVERY 21 DAYS
     Dates: start: 2020
  2. CARBOPLATIN [Suspect]
     Active Substance: CARBOPLATIN
     Indication: Cervix carcinoma
     Dosage: 300 MILLIGRAM/SQ. METER
  3. PACLITAXEL [Suspect]
     Active Substance: PACLITAXEL
     Indication: Cervix carcinoma
     Dosage: 175 MILLIGRAM/SQ. METER

REACTIONS (10)
  - Cervix carcinoma recurrent [Unknown]
  - Uterine cancer [Not Recovered/Not Resolved]
  - General physical health deterioration [Unknown]
  - Lymphadenopathy [Unknown]
  - Ureteric compression [Unknown]
  - Discomfort [Unknown]
  - Weight decreased [Unknown]
  - Anaemia [Unknown]
  - Emotional disorder [Unknown]
  - Inability to afford medication [Unknown]

NARRATIVE: CASE EVENT DATE: 20200101
